FAERS Safety Report 8071522-X (Version None)
Quarter: 2012Q1

REPORT INFORMATION
  Report Type: 
  Country: None (occurrence: None)
  Receive Date: 20120125
  Receipt Date: 20120119
  Transmission Date: 20120608
  Serious: Yes (Congenital Anomaly)
  Sender: FDA-Public Use
  Company Number: FI-ABBOTT-12P-055-0895238-00

PATIENT
  Sex: Male
  Weight: 1.57 kg

DRUGS (1)
  1. VALPROATE SODIUM [Suspect]
     Indication: MATERNAL EXPOSURE TIMING UNSPECIFIED
     Route: 064

REACTIONS (8)
  - FOETAL ANTICONVULSANT SYNDROME [None]
  - CRYPTORCHISM [None]
  - SEPTUM PELLUCIDUM AGENESIS [None]
  - ATRIAL SEPTAL DEFECT [None]
  - FOETAL EXPOSURE DURING PREGNANCY [None]
  - DYSMORPHISM [None]
  - CONGENITAL BOWING OF LONG BONES [None]
  - PATENT DUCTUS ARTERIOSUS [None]
